FAERS Safety Report 4860098-3 (Version None)
Quarter: 2005Q4

REPORT INFORMATION
  Report Type: 
  Country: None (occurrence: None)
  Receive Date: 20051219
  Receipt Date: 20051206
  Transmission Date: 20060501
  Serious: Yes (Other)
  Sender: FDA-Public Use
  Company Number: HU-ROCHE-427469

PATIENT
  Age: 16 Year
  Sex: Male

DRUGS (1)
  1. ROACCUTAN [Suspect]
     Indication: ACNE CONGLOBATA
     Route: 048
     Dates: start: 20051116, end: 20051130

REACTIONS (2)
  - FURUNCLE [None]
  - HORDEOLUM [None]
